FAERS Safety Report 24403520 (Version 1)
Quarter: 2024Q4

REPORT INFORMATION
  Report Type: Spontaneous
  Country: CN (occurrence: CN)
  Receive Date: 20241007
  Receipt Date: 20241007
  Transmission Date: 20250115
  Serious: Yes (Hospitalization)
  Sender: ELI LILLY AND CO
  Company Number: CN-Merck Healthcare KGaA-2024051706

PATIENT
  Age: 40 Year
  Sex: Male
  Weight: 57 kg

DRUGS (5)
  1. ERBITUX [Suspect]
     Active Substance: CETUXIMAB
     Indication: Tongue neoplasm malignant stage unspecified
     Dosage: 400 MG, UNKNOWN
     Route: 041
     Dates: start: 20240614, end: 20240614
  2. TORIPALIMAB [Suspect]
     Active Substance: TORIPALIMAB
     Indication: Tongue neoplasm malignant stage unspecified
     Dosage: 240 MG, DAILY
     Route: 041
     Dates: start: 20240614, end: 20240614
  3. CISPLATIN [Suspect]
     Active Substance: CISPLATIN
     Indication: Tongue neoplasm malignant stage unspecified
     Dosage: 40 MG, DAILY
     Route: 041
     Dates: start: 20240614, end: 20240616
  4. PACLITAXEL [Suspect]
     Active Substance: PACLITAXEL
     Indication: Tongue neoplasm malignant stage unspecified
     Dosage: 200 MG, DAILY
     Route: 041
     Dates: start: 20240614, end: 20240614
  5. PACLITAXEL [Suspect]
     Active Substance: PACLITAXEL
     Dosage: 180 MG, DAILY
     Route: 041
     Dates: start: 20240616, end: 20240616

REACTIONS (1)
  - Myelosuppression [Recovering/Resolving]

NARRATIVE: CASE EVENT DATE: 20240621
